FAERS Safety Report 10306171 (Version 1)
Quarter: 2014Q3

REPORT INFORMATION
  Report Type: Spontaneous
  Country: FR (occurrence: FR)
  Receive Date: 20140715
  Receipt Date: 20140715
  Transmission Date: 20150326
  Serious: Yes (Hospitalization)
  Sender: FDA-Public Use
  Company Number: FR-BRISTOL-MYERS SQUIBB COMPANY-21178538

PATIENT
  Age: 78 Year
  Sex: Male

DRUGS (17)
  1. AMIODARONE [Suspect]
     Active Substance: AMIODARONE
     Indication: ARRHYTHMIA SUPRAVENTRICULAR
     Dates: start: 20140506, end: 20140603
  2. ISOPHANE INSULIN [Concomitant]
     Active Substance: INSULIN NOS
  3. FORTIMEL [Concomitant]
     Active Substance: DIETARY SUPPLEMENT
  4. OSSOPAN [Concomitant]
  5. VENLAFAXINE HCL [Concomitant]
     Active Substance: VENLAFAXINE HYDROCHLORIDE
     Dates: start: 201403
  6. POLYMYXIN B [Suspect]
     Active Substance: POLYMYXIN B
     Indication: CATARACT OPERATION
     Dates: start: 20140523, end: 20140601
  7. CREON [Concomitant]
     Active Substance: PANCRELIPASE AMYLASE\PANCRELIPASE LIPASE\PANCRELIPASE PROTEASE
  8. SEROPLEX [Concomitant]
     Active Substance: ESCITALOPRAM OXALATE
  9. ESOMEPRAZOLE [Suspect]
     Active Substance: ESOMEPRAZOLE
     Dosage: HARD CAPSULE
     Route: 048
     Dates: start: 20140530
  10. DEXAMETHASONE. [Suspect]
     Active Substance: DEXAMETHASONE
     Indication: CATARACT OPERATION
     Dates: start: 20140513, end: 20140601
  11. COUMADINE [Suspect]
     Active Substance: WARFARIN SODIUM
     Indication: ARRHYTHMIA SUPRAVENTRICULAR
     Route: 048
     Dates: start: 20140513, end: 20140603
  12. BISOPROLOL [Suspect]
     Active Substance: BISOPROLOL
     Route: 048
     Dates: start: 20140502, end: 20140603
  13. ALTOCEL [Concomitant]
  14. NEOMYCIN [Suspect]
     Active Substance: NEOMYCIN
     Indication: CATARACT OPERATION
     Dates: start: 20140523, end: 20140601
  15. ATARAX [Concomitant]
     Active Substance: HYDROXYZINE\HYDROXYZINE HYDROCHLORIDE
  16. INDOCOLLYRE [Concomitant]
     Active Substance: INDOMETHACIN
     Dates: start: 20140528
  17. NOVORAPID [Concomitant]
     Active Substance: INSULIN ASPART

REACTIONS (5)
  - Cheilitis [Recovered/Resolved]
  - Stomatitis [Recovered/Resolved]
  - Genital erythema [Recovered/Resolved]
  - Rash maculo-papular [Recovered/Resolved]
  - Perianal erythema [Recovered/Resolved]

NARRATIVE: CASE EVENT DATE: 20140531
